FAERS Safety Report 16133830 (Version 2)
Quarter: 2019Q2

REPORT INFORMATION
  Report Type: Spontaneous
  Country: US (occurrence: US)
  Receive Date: 20190329
  Receipt Date: 20190403
  Transmission Date: 20190711
  Serious: Yes (Hospitalization, Other)
  Sender: FDA-Public Use
  Company Number: US-PURDUE PHARMA-USA-2019-0146637

PATIENT
  Sex: Male

DRUGS (5)
  1. OXYCONTIN [Suspect]
     Active Substance: OXYCODONE HYDROCHLORIDE
     Indication: PAIN
     Dosage: 20 MG, TID
     Route: 048
     Dates: start: 2000
  2. OXYCODONE HYDROCHLORIDE (SIMILAR TO NDA 22-272) [Suspect]
     Active Substance: OXYCODONE HYDROCHLORIDE
     Indication: PRODUCT USED FOR UNKNOWN INDICATION
     Route: 048
  3. OXYCONTIN [Suspect]
     Active Substance: OXYCODONE HYDROCHLORIDE
     Indication: SPINAL FUSION SURGERY
     Dosage: 80 MG, TID
     Route: 048
     Dates: end: 2010
  4. METHADONE [Concomitant]
     Active Substance: METHADONE HYDROCHLORIDE
     Indication: PRODUCT USED FOR UNKNOWN INDICATION
     Route: 065
  5. MORPHINE SULFATE (SIMILAR TO NDA 19-516) [Concomitant]
     Active Substance: MORPHINE SULFATE
     Indication: PAIN
     Route: 048

REACTIONS (12)
  - Off label use [Unknown]
  - Decreased activity [Unknown]
  - Unevaluable event [Unknown]
  - Intestinal obstruction [Unknown]
  - Rehabilitation therapy [Unknown]
  - Impaired quality of life [Not Recovered/Not Resolved]
  - Pain in extremity [Not Recovered/Not Resolved]
  - Depressed mood [Recovered/Resolved]
  - Suicidal ideation [Recovered/Resolved]
  - Hospitalisation [Recovered/Resolved]
  - Constipation [Unknown]
  - Product prescribing issue [Unknown]

NARRATIVE: CASE EVENT DATE: 2000
